FAERS Safety Report 4595290-9 (Version None)
Quarter: 2005Q1

REPORT INFORMATION
  Report Type: 
  Country: None (occurrence: None)
  Receive Date: 20050223
  Receipt Date: 20050212
  Transmission Date: 20050727
  Serious: Yes (Other)
  Sender: FDA-Public Use
  Company Number: 2005005206

PATIENT
  Age: 62 Year
  Sex: Female
  Weight: 102.0593 kg

DRUGS (10)
  1. LIPITOR [Suspect]
     Indication: BLOOD CHOLESTEROL INCREASED
     Dosage: 10 MG (10 MG, 1 IN 1 D), ORAL
     Route: 048
     Dates: start: 20040101, end: 20041222
  2. CYCLOSPORINE [Concomitant]
  3. MYCOPHENOLATE MOFETIL (MYCOPHENOLATEMOFETIL) [Concomitant]
  4. POTASSIUM ACETATE [Concomitant]
  5. FUROSEMIDE [Concomitant]
  6. PREDNISONE [Concomitant]
  7. ATENOLOL [Concomitant]
  8. INSULIN [Concomitant]
  9. GLIMEPIRIDE [Concomitant]
  10. WARFARIN SODIUM (WARFARIN SODIM) [Concomitant]

REACTIONS (6)
  - ABASIA [None]
  - ARTHRALGIA [None]
  - BODY HEIGHT DECREASED [None]
  - DEPRESSION [None]
  - MOBILITY DECREASED [None]
  - PAIN IN EXTREMITY [None]
